FAERS Safety Report 4999256-6 (Version None)
Quarter: 2006Q2

REPORT INFORMATION
  Report Type: 
  Country: None (occurrence: None)
  Receive Date: 20060509
  Receipt Date: 20060426
  Transmission Date: 20061013
  Serious: Yes (Death)
  Sender: FDA-Public Use
  Company Number: GXKR2005US01944

PATIENT
  Age: 59 Year
  Sex: Female

DRUGS (2)
  1. CEFTRIAXONE [Suspect]
     Indication: BRONCHITIS
     Dosage: 1 GM, QD, INTRAMUSCULAR
     Route: 030
     Dates: start: 20051207
  2. STEROID [Concomitant]

REACTIONS (5)
  - ABDOMINAL PAIN UPPER [None]
  - ANAPHYLACTIC SHOCK [None]
  - FALL [None]
  - MALAISE [None]
  - VOMITING [None]
